FAERS Safety Report 9186549 (Version 2)
Quarter: 2014Q4

REPORT INFORMATION
  Report Type: Spontaneous
  Country: US (occurrence: US)
  Receive Date: 20130325
  Receipt Date: 20141105
  Transmission Date: 20150529
  Serious: Yes (Other)
  Sender: FDA-Public Use
  Company Number: US-ROCHE-1202381

PATIENT
  Sex: Male

DRUGS (1)
  1. XOLAIR [Suspect]
     Active Substance: OMALIZUMAB
     Indication: ASTHMA
     Route: 058

REACTIONS (5)
  - Asthma [Unknown]
  - Pulmonary function test decreased [Unknown]
  - Organising pneumonia [Unknown]
  - Weight increased [Unknown]
  - Immune system disorder [Unknown]
